FAERS Safety Report 8029797-9 (Version None)
Quarter: 2012Q1

REPORT INFORMATION
  Report Type: 
  Country: None (occurrence: None)
  Receive Date: 20120104
  Receipt Date: 20111219
  Transmission Date: 20120608
  Serious: Yes (Hospitalization)
  Sender: FDA-Public Use
  Company Number: 1000026556

PATIENT
  Age: 82 Year
  Sex: Female
  Weight: 54.9 kg

DRUGS (8)
  1. ALENDRONATE (ALENDRONATE SODIUM) (ALENDRONATE SODIUM) [Concomitant]
  2. SIMVASTATIN [Concomitant]
  3. ADCAL D3 (CALCIUM CARBONATE, COLECALCIFEROL) (CALCIUM CARBONATE, COLEC [Concomitant]
  4. LATANOPROST (LATANOPROST) (LATANOPROST) [Concomitant]
  5. CITALOPRAM HYDROBROMIDE [Suspect]
     Indication: DEPRESSION
     Dosage: 10 MG (10 MG,1 IN 1 D),ORAL
     Route: 048
     Dates: end: 20111111
  6. COSOPT (DORZOLAMIDE HYDROCHLORIDE, TIMOLOL MALEATE) (DORZOLAMIDE HYDRO [Concomitant]
  7. ASPIRIN [Concomitant]
  8. OMEPRAZOLE [Concomitant]

REACTIONS (3)
  - HYPOPHAGIA [None]
  - HYPONATRAEMIA [None]
  - CONFUSIONAL STATE [None]
